FAERS Safety Report 4338771-5 (Version None)
Quarter: 2004Q2

REPORT INFORMATION
  Report Type: 
  Country: None (occurrence: None)
  Receive Date: 20040409
  Receipt Date: 20040329
  Transmission Date: 20050107
  Serious: Yes (Other)
  Sender: FDA-Public Use
  Company Number: 163-20785-04030517

PATIENT
  Age: 17 Year
  Sex: Male

DRUGS (9)
  1. THALOMID [Suspect]
     Indication: RHEUMATOID ARTHRITIS
     Dosage: SEE IMAGE
     Route: 048
     Dates: start: 20030506, end: 20040325
  2. THALOMID [Suspect]
     Indication: RHEUMATOID ARTHRITIS
     Dosage: SEE IMAGE
     Route: 048
     Dates: start: 20040326
  3. ETANERCEPT (ETANERCEPT) [Suspect]
     Dosage: 37.5 MG, TWICE A DAY,
  4. DEFLAZACORT (DEFLAZACORT) [Concomitant]
  5. PRILOSEC [Concomitant]
  6. ACTONEL [Concomitant]
  7. PROZAC [Concomitant]
  8. MINERAL SUPPLEMENTS (MINERAL SUPPLEMENTS) [Concomitant]
  9. VITAMIN SUPPLEMENTS [Concomitant]

REACTIONS (1)
  - BENIGN INTRACRANIAL HYPERTENSION [None]
